FAERS Safety Report 15807260 (Version 1)
Quarter: 2019Q1

REPORT INFORMATION
  Report Type: Spontaneous
  Country: GB (occurrence: GB)
  Receive Date: 20190110
  Receipt Date: 20190110
  Transmission Date: 20190417
  Serious: Yes (Hospitalization)
  Sender: FDA-Public Use
  Company Number: GB-MYLANLABS-2019M1001543

PATIENT
  Age: 69 Year
  Sex: Female
  Weight: 62.4 kg

DRUGS (3)
  1. HYDROCHLOROTHIAZIDE. [Suspect]
     Active Substance: HYDROCHLOROTHIAZIDE
     Indication: HYPERTENSION
     Dosage: UNK (AT NIGHT. 32MG/12.5MG)
     Route: 048
  2. CANDESARTAN. [Suspect]
     Active Substance: CANDESARTAN
     Indication: HYPERTENSION
     Dosage: UNK (AT NIGHT. 32MG/12.5MG)
     Route: 048
  3. MIANSERIN [Suspect]
     Active Substance: MIANSERIN
     Indication: INSOMNIA
     Dosage: 5 MILLIGRAM, PRN (AT NIGHT)
     Route: 048

REACTIONS (4)
  - Hyponatraemia [Recovered/Resolved]
  - Diarrhoea [Unknown]
  - Headache [Unknown]
  - Vomiting [Unknown]
